FAERS Safety Report 25868810 (Version 2)
Quarter: 2025Q4

REPORT INFORMATION
  Report Type: Spontaneous
  Country: US (occurrence: US)
  Receive Date: 20251001
  Receipt Date: 20251010
  Transmission Date: 20260118
  Serious: No
  Sender: BRISTOL-MYERS SQUIBB COMPANY
  Company Number: US-BRISTOL-MYERS SQUIBB COMPANY-2025-133944

PATIENT
  Age: 84 Year
  Sex: Female

DRUGS (11)
  1. THALOMID [Suspect]
     Active Substance: THALIDOMIDE
     Indication: Plasma cell myeloma
     Dosage: TAKE 1 CAP PO DAILY FOR 1 WEEK, THEN INCREASE TO 2 CAPS DAILY IF NO REACTION
  2. BENADRYL ALLERGY [Concomitant]
     Active Substance: DIPHENHYDRAMINE HYDROCHLORIDE
     Indication: Product used for unknown indication
  3. CALCIUM\MAGNESIUM [Concomitant]
     Active Substance: CALCIUM\MAGNESIUM
     Indication: Product used for unknown indication
  4. DARZALEX [Concomitant]
     Active Substance: DARATUMUMAB
     Indication: Product used for unknown indication
     Dosage: 100MG/5ML, 1VIAL
  5. DEXAMETHASONE PHO [Concomitant]
     Indication: Product used for unknown indication
     Dosage: 1ML
  6. GARLIC [Concomitant]
     Active Substance: GARLIC
     Indication: Product used for unknown indication
  7. SYNTHROID [Concomitant]
     Active Substance: LEVOTHYROXINE SODIUM
     Indication: Product used for unknown indication
  8. TYLENOL [Concomitant]
     Active Substance: ACETAMINOPHEN
     Indication: Product used for unknown indication
     Dosage: 500MG E/S
  9. ULTRATABS [Concomitant]
     Indication: Product used for unknown indication
  10. VITAMIN B-COMPLEX [Concomitant]
     Active Substance: DEXPANTHENOL\NIACINAMIDE\PYRIDOXINE HYDROCHLORIDE\RIBOFLAVIN 5^-PHOSPHATE SODIUM\THIAMINE HYDROCHLOR
     Indication: Product used for unknown indication
  11. VITAMIN D3 [Concomitant]
     Active Substance: CHOLECALCIFEROL
     Indication: Product used for unknown indication

REACTIONS (1)
  - Joint swelling [Not Recovered/Not Resolved]

NARRATIVE: CASE EVENT DATE: 20250913
